FAERS Safety Report 25289458 (Version 9)
Quarter: 2025Q4

REPORT INFORMATION
  Report Type: Spontaneous
  Country: US (occurrence: US)
  Receive Date: 20250509
  Receipt Date: 20251103
  Transmission Date: 20260117
  Serious: No
  Sender: PFIZER
  Company Number: US-PFIZER INC-202500095725

PATIENT
  Age: 55 Year
  Sex: Male

DRUGS (4)
  1. TUKYSA [Suspect]
     Active Substance: TUCATINIB
     Indication: Colon cancer metastatic
     Dosage: 300 MG, 2X/DAY
     Route: 048
  2. TUKYSA [Suspect]
     Active Substance: TUCATINIB
     Dosage: 150 MG
     Dates: end: 202510
  3. TRASTUZUMAB [Concomitant]
     Active Substance: TRASTUZUMAB
     Indication: Colon cancer metastatic
     Dosage: UNK
  4. PREDNISONE [Concomitant]
     Active Substance: PREDNISONE
     Indication: Tendon disorder
     Dosage: UNK

REACTIONS (6)
  - Mass [Unknown]
  - Diarrhoea [Unknown]
  - Constipation [Unknown]
  - Cold sweat [Unknown]
  - Abdominal pain [Unknown]
  - Hypoaesthesia [Unknown]
